FAERS Safety Report 5989537-1 (Version None)
Quarter: 2008Q4

REPORT INFORMATION
  Report Type: 
  Country: None (occurrence: None)
  Receive Date: 20081208
  Receipt Date: 20081124
  Transmission Date: 20090506
  Serious: Yes (Other)
  Sender: FDA-Public Use
  Company Number: SPV1-2008-02612

PATIENT
  Age: 38 Year
  Sex: Female
  Weight: 63.5 kg

DRUGS (4)
  1. CARBATROL [Suspect]
     Indication: CONVULSION
     Dosage: 400 MG (TWO 200MG CAPSULES BID), 2X/DAY:BID, ORAL; 400 MG (TWO 200MG CAPSULES BID), 2X/DAY:BID, ORAL
     Route: 048
     Dates: start: 20080101, end: 20080601
  2. CARBATROL [Suspect]
     Indication: CONVULSION
     Dosage: 400 MG (TWO 200MG CAPSULES BID), 2X/DAY:BID, ORAL; 400 MG (TWO 200MG CAPSULES BID), 2X/DAY:BID, ORAL
     Route: 048
     Dates: start: 20080601
  3. RAPAMUNE [Concomitant]
  4. DEPAKOTE [Concomitant]

REACTIONS (5)
  - ABDOMINAL PAIN UPPER [None]
  - CONVULSION [None]
  - HYPERHIDROSIS [None]
  - SOMNAMBULISM [None]
  - TREATMENT NONCOMPLIANCE [None]
